FAERS Safety Report 16911318 (Version 1)
Quarter: 2019Q4

REPORT INFORMATION
  Report Type: Spontaneous
  Country: US (occurrence: US)
  Receive Date: 20190821
  Receipt Date: 20190821
  Transmission Date: 20200122
  Serious: Yes (Hospitalization)
  Sender: FDA-Public Use
  Company Number: None

PATIENT
  Age: 68 Year
  Sex: Male

DRUGS (1)
  1. SUTENT [Suspect]
     Active Substance: SUNITINIB MALATE
     Route: 048
     Dates: start: 20190710, end: 201908

REACTIONS (5)
  - Chills [None]
  - Hypotension [None]
  - Pyrexia [None]
  - Therapy cessation [None]
  - Renal impairment [None]

NARRATIVE: CASE EVENT DATE: 201908
